FAERS Safety Report 24035029 (Version 1)
Quarter: 2024Q3

REPORT INFORMATION
  Report Type: Spontaneous
  Country: US (occurrence: US)
  Receive Date: 20240701
  Receipt Date: 20240701
  Transmission Date: 20241017
  Serious: Yes (Life-Threatening, Hospitalization, Other)
  Sender: ENDO
  Company Number: US-ENDO USA, INC.-2024-002710

PATIENT
  Age: 40 Year
  Sex: Male

DRUGS (2)
  1. KETALAR [Suspect]
     Active Substance: KETAMINE HYDROCHLORIDE
     Indication: Product used for unknown indication
     Dosage: UNK UNKNOWN, UNKNOWN (SNORTED A LARGE DOSE OF KETAMINE)
  2. KETALAR [Suspect]
     Active Substance: KETAMINE HYDROCHLORIDE
     Dosage: UNK UNKNOWN, UNKNOWN
     Route: 065

REACTIONS (8)
  - Anaemia [Recovered/Resolved]
  - Acute kidney injury [Recovered/Resolved]
  - Chronic kidney disease [Unknown]
  - Hyponatraemia [Recovered/Resolved]
  - Retroperitoneal haematoma [Recovered/Resolved]
  - Scrotal oedema [Recovered/Resolved]
  - Drug abuse [Unknown]
  - Tachycardia [Recovered/Resolved]
